FAERS Safety Report 5405315-6 (Version None)
Quarter: 2007Q3

REPORT INFORMATION
  Report Type: 
  Country: None (occurrence: None)
  Receive Date: 20070803
  Receipt Date: 20070724
  Transmission Date: 20080115
  Serious: Yes (Hospitalization)
  Sender: FDA-Public Use
  Company Number: B0481821A

PATIENT
  Age: 5 Year
  Sex: Male

DRUGS (3)
  1. ALBENDAZOLE [Suspect]
     Indication: TAENIASIS
     Dosage: 15MGK PER DAY
     Route: 065
     Dates: start: 20051001
  2. PREDNISONE TAB [Concomitant]
     Route: 048
  3. VALPROIC ACID [Concomitant]
     Route: 065

REACTIONS (6)
  - BLINDNESS [None]
  - CONDITION AGGRAVATED [None]
  - CYST [None]
  - LACRIMATION INCREASED [None]
  - PULMONARY TUBERCULOSIS [None]
  - RETINAL DETACHMENT [None]
